FAERS Safety Report 17556151 (Version 1)
Quarter: 2020Q1

REPORT INFORMATION
  Report Type: Spontaneous
  Country: US (occurrence: US)
  Receive Date: 20200318
  Receipt Date: 20200318
  Transmission Date: 20200409
  Serious: No
  Sender: FDA-Public Use
  Company Number: US-THERAPEUTICSMD-2020TMD00303

PATIENT
  Age: 55 Year
  Sex: Female

DRUGS (4)
  1. PROMETRIUM [Concomitant]
     Active Substance: PROGESTERONE
  2. IMVEXXY [Suspect]
     Active Substance: ESTRADIOL
     Dosage: 10 ?G, 2X/WEEK
     Route: 067
     Dates: start: 20191220
  3. UNSPECIFIED ESTROGEN [Concomitant]
     Active Substance: ESTROGENS
     Dosage: 1 MG
     Route: 048
  4. UNSPECIFIED ESTROGEN [Concomitant]
     Active Substance: ESTROGENS
     Dosage: 2 MG
     Route: 048

REACTIONS (2)
  - Off label use [Unknown]
  - Vaginal haemorrhage [Not Recovered/Not Resolved]

NARRATIVE: CASE EVENT DATE: 20191220
